FAERS Safety Report 21126093 (Version 1)
Quarter: 2022Q3

REPORT INFORMATION
  Report Type: Spontaneous
  Country: US (occurrence: None)
  Receive Date: 20220723
  Receipt Date: 20220723
  Transmission Date: 20221027
  Serious: No
  Sender: FDA-Public Use
  Company Number: None

PATIENT
  Age: 32 Year
  Sex: Female
  Weight: 66.6 kg

DRUGS (1)
  1. MYCHELLE SUN SHIELD LIQUID SPF 50 LIGHT/MEDIUM [Suspect]
     Active Substance: ZINC OXIDE
     Indication: Prophylaxis against solar radiation
     Dosage: FREQUENCY : DAILY;?
     Route: 061
     Dates: start: 202207, end: 20220722

REACTIONS (2)
  - Rash papular [None]
  - Skin warm [None]

NARRATIVE: CASE EVENT DATE: 20220721
